FAERS Safety Report 7761147-5 (Version None)
Quarter: 2011Q3

REPORT INFORMATION
  Report Type: 
  Country: None (occurrence: None)
  Receive Date: 20110915
  Receipt Date: 20110621
  Transmission Date: 20111222
  Serious: Yes (Death)
  Sender: FDA-Public Use
  Company Number: FK201101255

PATIENT
  Age: 53 Year
  Sex: Male

DRUGS (2)
  1. PANITUMAMAB (PANITUMUMAB) (PANITUMUMAB) [Suspect]
     Dosage: 200 MG, ON DAY 1 AND 14  100 MG
  2. IRINOTECAN HCL [Suspect]
     Dosage: 200 MG, INTRAVENOUS (NOT OTHERWISE SPECIFIED) 150 MG, INTRAVENOUS 200 MG, INTRAVENOUS
     Route: 042

REACTIONS (9)
  - LUNG CONSOLIDATION [None]
  - CARDIAC ARREST [None]
  - PO2 DECREASED [None]
  - BLOOD PH DECREASED [None]
  - CARDIAC FAILURE [None]
  - BLOOD POTASSIUM INCREASED [None]
  - PCO2 INCREASED [None]
  - BLOOD POTASSIUM DECREASED [None]
  - BLOOD CALCIUM DECREASED [None]
